FAERS Safety Report 4339352-X (Version None)
Quarter: 2004Q2

REPORT INFORMATION
  Report Type: 
  Country: None (occurrence: None)
  Receive Date: 20040414
  Receipt Date: 20040414
  Transmission Date: 20050107
  Serious: Yes (Other)
  Sender: FDA-Public Use
  Company Number: None

PATIENT
  Age: 61 Year
  Sex: Female
  Weight: 95.2554 kg

DRUGS (7)
  1. TRAMADOL HCL [Suspect]
     Indication: PAIN
     Dosage: 1 TAB EVERY
     Dates: start: 20040401, end: 20040405
  2. PLAVIX [Concomitant]
  3. LIPITOR [Concomitant]
  4. LANTUS [Concomitant]
  5. ZYRTEC [Concomitant]
  6. PREVACID [Concomitant]
  7. NEUTRONTIN [Concomitant]

REACTIONS (2)
  - DRUG INEFFECTIVE [None]
  - PHARMACEUTICAL PRODUCT COMPLAINT [None]
